FAERS Safety Report 6508356-0 (Version None)
Quarter: 2009Q4

REPORT INFORMATION
  Report Type: 
  Country: None (occurrence: None)
  Receive Date: 20091221
  Receipt Date: 20090216
  Transmission Date: 20100525
  Serious: No
  Sender: FDA-Public Use
  Company Number: US-ASTRAZENECA-2007UW16883

PATIENT
  Age: 677 Month
  Sex: Female
  Weight: 86.2 kg

DRUGS (7)
  1. CRESTOR [Suspect]
     Indication: BLOOD CHOLESTEROL INCREASED
     Route: 048
     Dates: start: 20030101
  2. CRESTOR [Suspect]
     Route: 048
     Dates: start: 20080901
  3. ZETIA [Concomitant]
  4. LEVOXYL [Concomitant]
     Indication: HYPERTHYROIDISM
  5. ASPIRIN [Concomitant]
  6. VITAMINS [Concomitant]
  7. CARDIZEM [Concomitant]
     Indication: SUPRAVENTRICULAR TACHYCARDIA

REACTIONS (5)
  - ALANINE AMINOTRANSFERASE INCREASED [None]
  - ARTHRALGIA [None]
  - BLOOD TRIGLYCERIDES INCREASED [None]
  - HIGH DENSITY LIPOPROTEIN DECREASED [None]
  - LOW DENSITY LIPOPROTEIN INCREASED [None]
